FAERS Safety Report 4316467-3 (Version None)
Quarter: 2004Q1

REPORT INFORMATION
  Report Type: 
  Country: None (occurrence: None)
  Receive Date: 20040311
  Receipt Date: 20040225
  Transmission Date: 20041129
  Serious: Yes (Other)
  Sender: FDA-Public Use
  Company Number: NL-SHR-04-021751

PATIENT
  Age: 46 Year
  Sex: Female

DRUGS (1)
  1. MIRENA [Suspect]
     Dosage: 20 UG, INTRA-UTERINE
     Route: 015
     Dates: start: 20020201

REACTIONS (2)
  - CERVICAL POLYP [None]
  - METRORRHAGIA [None]
